FAERS Safety Report 24115815 (Version 2)
Quarter: 2024Q3

REPORT INFORMATION
  Report Type: Report from Study
  Country: JP (occurrence: JP)
  Receive Date: 20240721
  Receipt Date: 20240806
  Transmission Date: 20241017
  Serious: Yes (Death)
  Sender: AKEBIA THERAPEUTICS
  Company Number: JP-MTPC-MTPC2024-0014398

PATIENT

DRUGS (2)
  1. VADADUSTAT [Suspect]
     Active Substance: VADADUSTAT
     Indication: Nephrogenic anaemia
     Dosage: 300 MILLIGRAM, QD
     Route: 048
     Dates: start: 20210922, end: 20211018
  2. DAPRODUSTAT [Concomitant]
     Active Substance: DAPRODUSTAT
     Indication: Nephrogenic anaemia
     Dosage: UNK
     Route: 048
     Dates: start: 20211018, end: 20220124

REACTIONS (1)
  - Cardiac failure [Fatal]
